FAERS Safety Report 4269329-4 (Version None)
Quarter: 2004Q1

REPORT INFORMATION
  Report Type: 
  Country: None (occurrence: None)
  Receive Date: 20040113
  Receipt Date: 20030828
  Transmission Date: 20041129
  Serious: Yes (Hospitalization)
  Sender: FDA-Public Use
  Company Number: 200313266FR

PATIENT
  Age: 70 Year
  Sex: Female

DRUGS (9)
  1. AMAREL [Suspect]
     Indication: DIABETES MELLITUS NON-INSULIN-DEPENDENT
     Route: 048
     Dates: start: 20010101, end: 20030616
  2. LOVENOX [Suspect]
     Route: 058
     Dates: start: 20030703, end: 20030807
  3. ACETAMINOPHEN [Suspect]
     Route: 048
     Dates: start: 20030704, end: 20030804
  4. DIAMICRON [Suspect]
     Indication: DIABETES MELLITUS NON-INSULIN-DEPENDENT
     Route: 048
     Dates: start: 20030725, end: 20030805
  5. MORPHINE [Concomitant]
     Dates: start: 20030704, end: 20030719
  6. MYOLASTAN [Concomitant]
     Route: 048
     Dates: start: 20030704, end: 20030719
  7. ZOCOR [Concomitant]
     Dates: start: 20030704, end: 20030719
  8. OROKEN [Concomitant]
     Dates: start: 20030725, end: 20030805
  9. GRANOCYTE [Concomitant]
     Dates: start: 20030723, end: 20030730

REACTIONS (6)
  - AGRANULOCYTOSIS [None]
  - ANAEMIA [None]
  - BIOPSY BONE MARROW ABNORMAL [None]
  - HYPERPYREXIA [None]
  - POST PROCEDURAL COMPLICATION [None]
  - SPINAL OPERATION [None]
